FAERS Safety Report 7047352-4 (Version None)
Quarter: 2010Q4

REPORT INFORMATION
  Report Type: 
  Country: None (occurrence: None)
  Receive Date: 20101015
  Receipt Date: 20101008
  Transmission Date: 20110411
  Serious: Yes (Hospitalization)
  Sender: FDA-Public Use
  Company Number: PHHO2010KR13720

PATIENT
  Sex: Male
  Weight: 77.8 kg

DRUGS (14)
  1. ERL 080A ERL+TAB [Suspect]
     Indication: RENAL TRANSPLANT
     Dosage: 720 MG, BID
     Route: 048
     Dates: start: 20100812, end: 20100822
  2. ERL 080A ERL+TAB [Suspect]
     Dosage: 360 MG, BID
     Route: 048
     Dates: start: 20100823
  3. NEORAL [Suspect]
     Indication: RENAL TRANSPLANT
     Dosage: 400 MG, QD
     Route: 048
     Dates: start: 20100810, end: 20100812
  4. NEORAL [Suspect]
     Dosage: 375 MG
     Route: 048
     Dates: start: 20100813, end: 20100813
  5. NEORAL [Suspect]
     Dosage: 350 MG
     Route: 048
     Dates: start: 20100814, end: 20100814
  6. NEORAL [Suspect]
     Dosage: 300 MG
     Route: 048
     Dates: start: 20100815, end: 20100815
  7. NEORAL [Suspect]
     Dosage: 250 MG
     Route: 048
     Dates: start: 20100816, end: 20100817
  8. NEORAL [Suspect]
     Dosage: 225 MG
     Route: 048
     Dates: start: 20100818, end: 20100818
  9. NEORAL [Suspect]
     Dosage: 200 MG
     Route: 048
     Dates: start: 20100819, end: 20100819
  10. NEORAL [Suspect]
     Dosage: 175 MG
     Route: 048
     Dates: start: 20100820, end: 20100810
  11. NEORAL [Suspect]
     Dosage: 200 MG
     Route: 048
     Dates: start: 20100821, end: 20100831
  12. NEORAL [Suspect]
     Dosage: 100 MG
     Route: 048
     Dates: start: 20100901, end: 20100901
  13. BASILIXIMAB [Suspect]
     Indication: RENAL TRANSPLANT
  14. SOLU-MEDROL [Suspect]
     Indication: RENAL TRANSPLANT

REACTIONS (5)
  - CONCOMITANT DISEASE PROGRESSION [None]
  - CORYNEBACTERIUM INFECTION [None]
  - KIDNEY TRANSPLANT REJECTION [None]
  - PERITONITIS BACTERIAL [None]
  - URINE OUTPUT DECREASED [None]
